FAERS Safety Report 9122617 (Version 1)
Quarter: 2013Q1

REPORT INFORMATION
  Report Type: Spontaneous
  Country: US (occurrence: None)
  Receive Date: 20130130
  Receipt Date: 20130130
  Transmission Date: 20140127
  Serious: Yes (Death)
  Sender: FDA-Public Use
  Company Number: B0859650A

PATIENT
  Age: 74 Year
  Sex: Female

DRUGS (6)
  1. AMLODIPINE [Suspect]
     Dosage: UNK / UNK / ORAL?UNK
     Route: 048
  2. LAMOTRIGINE [Suspect]
     Dosage: UNK / UNK / ORAL?UNK
     Route: 048
  3. ALLOPURINOL [Suspect]
     Dosage: UNK / UNK / ORAL?UNK
     Route: 048
  4. THYROXINE SODIUM [Suspect]
     Dosage: UNK / UNK / ORAL?UNK
     Route: 048
  5. FRUSEMIDE [Suspect]
     Dosage: UNK / UNK / ORAL?UNK
     Route: 048
  6. METHYLPREDNISOLONE [Suspect]
     Dosage: UNK / UNK / ORAL?UNK
     Route: 048

REACTIONS (1)
  - Completed suicide [None]
